FAERS Safety Report 5358936-3 (Version None)
Quarter: 2007Q2

REPORT INFORMATION
  Report Type: 
  Country: None (occurrence: None)
  Receive Date: 20070615
  Receipt Date: 20070608
  Transmission Date: 20071010
  Serious: Yes (Hospitalization, Other)
  Sender: FDA-Public Use
  Company Number: B0475149A

PATIENT
  Age: 33 Year
  Sex: Female

DRUGS (2)
  1. LAMIVUDINE + ZIDOVUDINE [Suspect]
     Indication: ANTIVIRAL PROPHYLAXIS
     Dosage: 1TAB TWICE PER DAY
     Route: 048
     Dates: start: 20070508
  2. NEVIRAPINE [Suspect]
     Indication: ANTIVIRAL PROPHYLAXIS
     Dosage: 200MG TWICE PER DAY
     Route: 048
     Dates: start: 20070508

REACTIONS (7)
  - ASTHENIA [None]
  - LUNG INFILTRATION [None]
  - POSTPARTUM SEPSIS [None]
  - PULMONARY TUBERCULOSIS [None]
  - RETAINED PRODUCTS OF CONCEPTION [None]
  - STILLBIRTH [None]
  - UTERINE ENLARGEMENT [None]
